FAERS Safety Report 5129232-4 (Version None)
Quarter: 2006Q4

REPORT INFORMATION
  Report Type: 
  Country: None (occurrence: None)
  Receive Date: 20061011
  Receipt Date: 20060925
  Transmission Date: 20070319
  Serious: Yes (Other)
  Sender: FDA-Public Use
  Company Number: FR200607004960

PATIENT
  Age: 63 Year
  Sex: Female
  Weight: 63 kg

DRUGS (4)
  1. HUMALOG [Suspect]
     Indication: DIABETES MELLITUS INSULIN-DEPENDENT
     Dosage: SEE IMAGE
     Route: 058
     Dates: end: 20060701
  2. HUMALOG [Suspect]
     Indication: DIABETES MELLITUS INSULIN-DEPENDENT
     Dosage: SEE IMAGE
     Route: 058
     Dates: end: 20060701
  3. LANTUS (INSULIN GLARGINE) CARTRIDGE [Concomitant]
  4. LEVOTHYROXINE SODIUM [Concomitant]

REACTIONS (4)
  - HYPOGLYCAEMIA [None]
  - HYPOTENSION [None]
  - MALAISE [None]
  - PHARMACEUTICAL PRODUCT COMPLAINT [None]
